FAERS Safety Report 23055143 (Version 2)
Quarter: 2023Q4

REPORT INFORMATION
  Report Type: Report from Study
  Country: IT (occurrence: IT)
  Receive Date: 20231011
  Receipt Date: 20231101
  Transmission Date: 20240109
  Serious: Yes (Hospitalization, Other)
  Sender: FDA-Public Use
  Company Number: IT-ROCHE-3246173

PATIENT
  Age: 78 Year
  Sex: Male
  Weight: 80 kg

DRUGS (5)
  1. ABIRATERONE [Suspect]
     Active Substance: ABIRATERONE
     Indication: Prostate cancer
     Dosage: 1000 MILLIGRAM, MONTHLY
     Route: 048
  2. ABIRATERONE [Suspect]
     Active Substance: ABIRATERONE
     Indication: Hormone-refractory prostate cancer
  3. IPATASERTIB [Suspect]
     Active Substance: IPATASERTIB
     Indication: Prostate cancer
     Dosage: UNK
     Route: 065
  4. IPATASERTIB [Suspect]
     Active Substance: IPATASERTIB
     Indication: Hormone-refractory prostate cancer
     Dosage: 300 MILLIGRAM, MONTHLY
     Route: 048
     Dates: start: 20201022, end: 20221213
  5. IPATASERTIB [Suspect]
     Active Substance: IPATASERTIB
     Dosage: UNK
     Route: 048
     Dates: start: 20220831, end: 20231011

REACTIONS (6)
  - Peritonitis [Not Recovered/Not Resolved]
  - Cholecystitis [Unknown]
  - Cholelithiasis [Not Recovered/Not Resolved]
  - Angiopathy [Unknown]
  - Cholecystitis acute [Unknown]
  - Diarrhoea [Not Recovered/Not Resolved]

NARRATIVE: CASE EVENT DATE: 20221213
